FAERS Safety Report 20769566 (Version 1)
Quarter: 2022Q2

REPORT INFORMATION
  Report Type: Spontaneous
  Country: CN (occurrence: CN)
  Receive Date: 20220429
  Receipt Date: 20220429
  Transmission Date: 20220721
  Serious: Yes (Hospitalization)
  Sender: FDA-Public Use
  Company Number: CN-PFIZER INC-202200585065

PATIENT
  Age: 78 Year
  Sex: Female
  Weight: 56 kg

DRUGS (2)
  1. AMLODIPINE BESYLATE [Suspect]
     Active Substance: AMLODIPINE BESYLATE
     Indication: Hypertension
     Dosage: 5 MG, 1X/DAY
     Route: 048
     Dates: start: 20180417, end: 20220320
  2. ENALAPRIL MALEATE/FOLIC ACID [Concomitant]
     Indication: Hypertension
     Dosage: 10 MG, 1X/DAY

REACTIONS (11)
  - Palpitations [Unknown]
  - Agitation [Unknown]
  - Dizziness [Unknown]
  - Hot flush [Unknown]
  - Hyperhidrosis [Unknown]
  - Fatigue [Unknown]
  - Asthenia [Unknown]
  - Distractibility [Unknown]
  - Neurosis [Unknown]
  - Face oedema [Recovered/Resolved]
  - Oedema peripheral [Recovered/Resolved]

NARRATIVE: CASE EVENT DATE: 20220320
